FAERS Safety Report 10388623 (Version 3)
Quarter: 2015Q1

REPORT INFORMATION
  Report Type: Report from Study
  Country: US (occurrence: US)
  Receive Date: 20140815
  Receipt Date: 20150326
  Transmission Date: 20150720
  Serious: Yes (Death, Hospitalization)
  Sender: FDA-Public Use
  Company Number: US-009507513-1408USA009282

PATIENT
  Age: 57 Year

DRUGS (2)
  1. VELCADE [Suspect]
     Active Substance: BORTEZOMIB
     Indication: PLASMA CELL MYELOMA
     Dosage: DOSE: 1.3 M/M2, FREQUENCY: DAYS 1, 4, 8, 11
     Route: 058
     Dates: start: 20140219, end: 20140428
  2. DEXAMETHASONE. [Suspect]
     Active Substance: DEXAMETHASONE
     Indication: PLASMA CELL MYELOMA
     Dosage: FREQUENCY: DAYS 1-4 AND 9-12
     Route: 048
     Dates: start: 20140219, end: 20140428

REACTIONS (7)
  - Dyspnoea [Fatal]
  - Cough [Fatal]
  - Anaemia [Fatal]
  - Hypoxia [Fatal]
  - Weight decreased [Fatal]
  - Platelet count decreased [Fatal]
  - Decreased appetite [Fatal]

NARRATIVE: CASE EVENT DATE: 20140527
